FAERS Safety Report 20172674 (Version 7)
Quarter: 2022Q3

REPORT INFORMATION
  Report Type: Spontaneous
  Country: JP (occurrence: JP)
  Receive Date: 20211211
  Receipt Date: 20220915
  Transmission Date: 20221027
  Serious: Yes (Life-Threatening, Hospitalization, Other)
  Sender: FDA-Public Use
  Company Number: JP-KYOWAKIRIN-2021AKK020746

PATIENT
  Age: 48 Year
  Sex: Female

DRUGS (165)
  1. PEGFILGRASTIM [Suspect]
     Active Substance: PEGFILGRASTIM
     Indication: Colony stimulating factor therapy
     Dosage: 3.6 MILLIGRAM, QD
     Route: 058
     Dates: start: 20210625, end: 20210625
  2. DOCETAXEL [Concomitant]
     Active Substance: DOCETAXEL
     Indication: Breast cancer stage II
     Dosage: 75 MG/M2
     Route: 041
     Dates: start: 20210622, end: 20210622
  3. CYCLOPHOSPHAMIDE [Concomitant]
     Active Substance: CYCLOPHOSPHAMIDE
     Indication: Breast cancer stage II
     Dosage: 600 MILLIGRAM/SQ. METER
     Route: 041
     Dates: start: 20210622, end: 20210622
  4. MIROGABALIN BESYLATE [Concomitant]
     Active Substance: MIROGABALIN BESYLATE
     Indication: Product used for unknown indication
     Dosage: 15 MG, BID(AFTER BREAKFAST/BEFORE BEDTIME)
     Route: 048
     Dates: start: 20210706, end: 20210728
  5. MIROGABALIN BESYLATE [Concomitant]
     Active Substance: MIROGABALIN BESYLATE
     Dosage: 15 MG, BID(AFTER BREAKFAST/BEFORE BEDTIME)
     Route: 048
     Dates: start: 20210628, end: 20210704
  6. MIROGABALIN BESYLATE [Concomitant]
     Active Substance: MIROGABALIN BESYLATE
     Dosage: 30 MG, BID(AFTER BREAKFAST/BEFORE BEDTIME)
     Route: 048
     Dates: start: 20210705, end: 20210705
  7. MIROGABALIN BESYLATE [Concomitant]
     Active Substance: MIROGABALIN BESYLATE
     Dosage: 30 MG, BID (AFTER BREAKFAST/BEFORE BEDTIME)
     Route: 048
     Dates: start: 20210729, end: 20210802
  8. MIROGABALIN BESYLATE [Concomitant]
     Active Substance: MIROGABALIN BESYLATE
     Dosage: 15 MG, BID (AFTER BREAKFAST/BEFORE BEDTIME)
     Route: 048
     Dates: start: 20210803, end: 20210816
  9. MIROGABALIN BESYLATE [Concomitant]
     Active Substance: MIROGABALIN BESYLATE
     Dosage: 45 MG, BID (AFTER BREAKFAST/BEFORE BEDTIME)
     Route: 048
     Dates: start: 20210817, end: 20210817
  10. MEXILETINE HYDROCHLORIDE [Concomitant]
     Active Substance: MEXILETINE HYDROCHLORIDE
     Indication: Product used for unknown indication
     Dosage: 100 MG, TID(AFTER MEALS)
     Route: 048
     Dates: start: 20210706, end: 20210728
  11. MEXILETINE HYDROCHLORIDE [Concomitant]
     Active Substance: MEXILETINE HYDROCHLORIDE
     Dosage: 100 MG, TID(AFTER MEALS)
     Route: 048
     Dates: start: 20210628, end: 20210704
  12. MEXILETINE HYDROCHLORIDE [Concomitant]
     Active Substance: MEXILETINE HYDROCHLORIDE
     Dosage: 200 MG, TID (AFTER MEALS)
     Route: 048
     Dates: start: 20210705, end: 20210705
  13. MEXILETINE HYDROCHLORIDE [Concomitant]
     Active Substance: MEXILETINE HYDROCHLORIDE
     Dosage: 200 MG, TID(AFTER MEALS
     Route: 048
     Dates: start: 20210729, end: 20210802
  14. MEXILETINE HYDROCHLORIDE [Concomitant]
     Active Substance: MEXILETINE HYDROCHLORIDE
     Dosage: 100 MG, TID (AFTER MEALS)
     Route: 048
     Dates: start: 20210803, end: 20210817
  15. MEXILETINE HYDROCHLORIDE [Concomitant]
     Active Substance: MEXILETINE HYDROCHLORIDE
     Dosage: 300 MG, TID(AFTER MEALS)
     Route: 048
     Dates: start: 20210817, end: 20210817
  16. HERBALS [Concomitant]
     Active Substance: HERBALS
     Indication: Product used for unknown indication
     Dosage: 2.5 G, TID (IMMEDIATELY BEFORE MEAL)
     Route: 048
     Dates: start: 20210706, end: 20210728
  17. HERBALS [Concomitant]
     Active Substance: HERBALS
     Dosage: 2.5 G, TID(IMMEDIATELY BEFORE MEAL)
     Route: 048
     Dates: start: 20210628, end: 20210704
  18. HERBALS [Concomitant]
     Active Substance: HERBALS
     Dosage: 5 G, TID (IMMEDIATELY BEFORE MEAL)
     Route: 048
     Dates: start: 20210705, end: 20210705
  19. HERBALS [Concomitant]
     Active Substance: HERBALS
     Dosage: 5 G, TID (IMMEDIATELY BEFORE MEAL)
     Route: 048
     Dates: start: 20210729, end: 20210802
  20. HERBALS [Concomitant]
     Active Substance: HERBALS
     Dosage: 2.5 G, TID(IMMEDIATELY BEFORE MEAL)
     Route: 048
     Dates: start: 20210803, end: 20210816
  21. HERBALS [Concomitant]
     Active Substance: HERBALS
     Dosage: 7.5 G, TID (IMMEDIATELY BEFORE MEAL)
     Route: 048
     Dates: start: 20210817, end: 20210817
  22. HERBALS [Concomitant]
     Active Substance: HERBALS
     Dosage: 1 DOSAGE FORM, TID
     Route: 048
     Dates: start: 20210721, end: 20210728
  23. HERBALS [Concomitant]
     Active Substance: HERBALS
     Dosage: 2 DOSAGE FORM, TID
     Route: 048
     Dates: start: 20210729, end: 20210802
  24. HERBALS [Concomitant]
     Active Substance: HERBALS
     Dosage: 1 DOSAGE FORM, TID
     Route: 048
     Dates: start: 20210803, end: 20210816
  25. HERBALS [Concomitant]
     Active Substance: HERBALS
     Dosage: 3 DOSAGE FORM, TID
     Route: 048
     Dates: start: 20210817, end: 20210817
  26. HERBALS [Concomitant]
     Active Substance: HERBALS
     Dosage: 1 DOSAGE FORM, TID
     Route: 048
     Dates: start: 20210721, end: 20210728
  27. HERBALS [Concomitant]
     Active Substance: HERBALS
     Dosage: 2 DOSAGE FORM, TID
     Route: 048
     Dates: start: 20210729, end: 20210802
  28. HERBALS [Concomitant]
     Active Substance: HERBALS
     Dosage: 1 DOSAGE FORM, TID
     Route: 048
     Dates: start: 20210803, end: 20210816
  29. HERBALS [Concomitant]
     Active Substance: HERBALS
     Dosage: 3 DOSAGE FORM, TID
     Route: 048
     Dates: start: 20210817, end: 20210817
  30. HERBALS [Concomitant]
     Active Substance: HERBALS
     Dosage: 2.5 GRAM, TID
     Route: 048
     Dates: start: 20210706, end: 20210728
  31. HERBALS [Concomitant]
     Active Substance: HERBALS
     Dosage: 2.5 GRAM, TID
     Route: 048
     Dates: start: 20210628, end: 20210704
  32. HERBALS [Concomitant]
     Active Substance: HERBALS
     Dosage: 5 GRAM, TID
     Route: 048
     Dates: start: 20210705, end: 20210705
  33. HERBALS [Concomitant]
     Active Substance: HERBALS
     Dosage: 5 GRAM, TID
     Route: 048
     Dates: start: 20210729, end: 20210802
  34. HERBALS [Concomitant]
     Active Substance: HERBALS
     Dosage: 2.5 GRAM, TID
     Route: 048
     Dates: start: 20210803, end: 20210816
  35. HERBALS [Concomitant]
     Active Substance: HERBALS
     Dosage: 7.5 GRAM, TID
     Route: 048
     Dates: start: 20210817, end: 20210817
  36. HERBALS [Concomitant]
     Active Substance: HERBALS
     Dosage: 1 DOSAGE FORM
     Dates: start: 20210721, end: 20210728
  37. HERBALS [Concomitant]
     Active Substance: HERBALS
     Dosage: 1 UNK
     Dates: start: 20210729, end: 20210802
  38. HERBALS [Concomitant]
     Active Substance: HERBALS
     Dosage: 1 UNK
     Dates: start: 20210803, end: 20210816
  39. HERBALS [Concomitant]
     Active Substance: HERBALS
     Dosage: 3 UNK
     Dates: start: 20210817, end: 20210817
  40. HERBALS [Concomitant]
     Active Substance: HERBALS
     Dosage: 1 DOSAGE FORM, TID
     Route: 048
     Dates: start: 20210721, end: 20210728
  41. HERBALS [Concomitant]
     Active Substance: HERBALS
     Dosage: 2 DOSAGE FORM, TID
     Route: 048
     Dates: start: 20210729, end: 20210802
  42. HERBALS [Concomitant]
     Active Substance: HERBALS
     Dosage: 1 DOSAGE FORM, TID
     Route: 048
     Dates: start: 20210803, end: 20210816
  43. HERBALS [Concomitant]
     Active Substance: HERBALS
     Dosage: 3 DOSAGE FORM, TID
     Route: 048
     Dates: start: 20210817, end: 20210817
  44. SOKEIKAKKETSUTO [ACHYRANTHES BIDENTATA ROOT;ANGELICA ACUTILOBA ROOT;AN [Concomitant]
     Indication: Product used for unknown indication
     Dosage: 1 DF, TID(IMMEDIATELY BEFORE MEAL)
     Route: 048
     Dates: start: 20210628, end: 20210705
  45. SOKEIKAKKETSUTO [ACHYRANTHES BIDENTATA ROOT;ANGELICA ACUTILOBA ROOT;AN [Concomitant]
     Dosage: 1 DOSAGE FORM, TID
     Route: 048
     Dates: start: 20210628, end: 20210705
  46. MAGNESIUM OXIDE [Concomitant]
     Active Substance: MAGNESIUM OXIDE
     Indication: Product used for unknown indication
     Dosage: 330 MG, TID (AFTER MEALS)
     Route: 048
     Dates: start: 20210628, end: 20210712
  47. AZ COMBINATION [Concomitant]
     Indication: Product used for unknown indication
     Dosage: 2 G, 5X/DAY
     Route: 049
     Dates: start: 20210628, end: 20210712
  48. AZ COMBINATION [Concomitant]
     Dosage: 2 G, TID
     Route: 049
     Dates: start: 20210807, end: 20210812
  49. LOXOPROFEN SODIUM DIHYDRATE [Concomitant]
     Active Substance: LOXOPROFEN SODIUM DIHYDRATE
     Indication: Pain
     Dosage: 120 MILLIGRAM
     Route: 048
     Dates: start: 20210722, end: 20210729
  50. LOXOPROFEN SODIUM DIHYDRATE [Concomitant]
     Active Substance: LOXOPROFEN SODIUM DIHYDRATE
     Indication: Pyrexia
     Dosage: 60 MILLIGRAM
     Route: 048
     Dates: start: 20210702, end: 20210705
  51. LOXOPROFEN SODIUM DIHYDRATE [Concomitant]
     Active Substance: LOXOPROFEN SODIUM DIHYDRATE
     Dosage: 180 MILLIGRAM
     Route: 048
     Dates: start: 20210706, end: 20210706
  52. LOXOPROFEN SODIUM DIHYDRATE [Concomitant]
     Active Substance: LOXOPROFEN SODIUM DIHYDRATE
     Dosage: 240 MILLIGRAM
     Route: 048
     Dates: start: 20210707, end: 20210707
  53. LOXOPROFEN SODIUM DIHYDRATE [Concomitant]
     Active Substance: LOXOPROFEN SODIUM DIHYDRATE
     Dosage: 120 MILLIGRAM
     Route: 048
     Dates: start: 20210708, end: 20210711
  54. LOXOPROFEN SODIUM DIHYDRATE [Concomitant]
     Active Substance: LOXOPROFEN SODIUM DIHYDRATE
     Dosage: 60 MILLIGRAM
     Route: 048
     Dates: start: 20210712, end: 20210714
  55. LOXOPROFEN SODIUM DIHYDRATE [Concomitant]
     Active Substance: LOXOPROFEN SODIUM DIHYDRATE
     Dosage: 120 MILLIGRAM
     Route: 048
     Dates: start: 20210715, end: 20210720
  56. LOXOPROFEN SODIUM DIHYDRATE [Concomitant]
     Active Substance: LOXOPROFEN SODIUM DIHYDRATE
     Dosage: 180 MILLIGRAM
     Route: 048
     Dates: start: 20210721, end: 20210721
  57. LOXOPROFEN SODIUM DIHYDRATE [Concomitant]
     Active Substance: LOXOPROFEN SODIUM DIHYDRATE
     Dosage: 60 MILLIGRAM
     Route: 048
     Dates: start: 20210730, end: 20210806
  58. LOXOPROFEN SODIUM DIHYDRATE [Concomitant]
     Active Substance: LOXOPROFEN SODIUM DIHYDRATE
     Dosage: 120 MILLIGRAM
     Route: 048
     Dates: start: 20210807, end: 20210808
  59. LOXOPROFEN SODIUM DIHYDRATE [Concomitant]
     Active Substance: LOXOPROFEN SODIUM DIHYDRATE
     Dosage: 180 MILLIGRAM
     Route: 048
     Dates: start: 20210809, end: 20210809
  60. LOXOPROFEN SODIUM DIHYDRATE [Concomitant]
     Active Substance: LOXOPROFEN SODIUM DIHYDRATE
     Dosage: 120 MILLIGRAM
     Route: 048
     Dates: start: 20210810, end: 20210811
  61. LOXOPROFEN SODIUM DIHYDRATE [Concomitant]
     Active Substance: LOXOPROFEN SODIUM DIHYDRATE
     Dosage: 60 MILLIGRAM
     Route: 048
     Dates: start: 20210812, end: 20210816
  62. LOXOPROFEN SODIUM DIHYDRATE [Concomitant]
     Active Substance: LOXOPROFEN SODIUM DIHYDRATE
     Dosage: 180 MILLIGRAM
     Route: 048
     Dates: start: 20210817, end: 20210817
  63. REBAMIPIDE [Concomitant]
     Active Substance: REBAMIPIDE
     Indication: Pain
     Dosage: 200 MG, WHEN PAIN OCCURRED
     Route: 048
     Dates: start: 20210722, end: 20210729
  64. REBAMIPIDE [Concomitant]
     Active Substance: REBAMIPIDE
     Indication: Pyrexia
     Dosage: 100 MG, WHEN PAIN OCCURRED
     Route: 048
     Dates: start: 20210702, end: 20210705
  65. REBAMIPIDE [Concomitant]
     Active Substance: REBAMIPIDE
     Dosage: 300 MG, WHEN PAIN OCCURRED
     Route: 048
     Dates: start: 20210706, end: 20210706
  66. REBAMIPIDE [Concomitant]
     Active Substance: REBAMIPIDE
     Dosage: 400 MG, WHEN PYREXIA/PAIN OCCURRED
     Route: 048
     Dates: start: 20210707, end: 20210707
  67. REBAMIPIDE [Concomitant]
     Active Substance: REBAMIPIDE
     Dosage: 200 MG, WHEN PYREXIA/PAIN OCCURRED
     Route: 048
     Dates: start: 20210708, end: 20210711
  68. REBAMIPIDE [Concomitant]
     Active Substance: REBAMIPIDE
     Dosage: 100 MG WHEN PYREXIA OCCURRED
     Route: 048
     Dates: start: 20210712, end: 20210714
  69. REBAMIPIDE [Concomitant]
     Active Substance: REBAMIPIDE
     Dosage: 200 MG, WHEN PYREXIA/PAIN OCCURRED
     Route: 048
     Dates: start: 20210715, end: 20210720
  70. REBAMIPIDE [Concomitant]
     Active Substance: REBAMIPIDE
     Dosage: 300 MG, WHEN PYREXIA/PAIN OCCURRED
     Route: 048
     Dates: start: 20210721, end: 20210721
  71. REBAMIPIDE [Concomitant]
     Active Substance: REBAMIPIDE
     Dosage: 100 MG, WHEN PAIN OCCURRED
     Route: 048
     Dates: start: 20210730, end: 20210806
  72. REBAMIPIDE [Concomitant]
     Active Substance: REBAMIPIDE
     Dosage: 200 MG, WHEN PAIN OCCURRED
     Route: 048
     Dates: start: 20210807, end: 20210808
  73. REBAMIPIDE [Concomitant]
     Active Substance: REBAMIPIDE
     Dosage: 300 MG, WHEN PAIN OCCURRED
     Route: 048
     Dates: start: 20210809, end: 20210809
  74. REBAMIPIDE [Concomitant]
     Active Substance: REBAMIPIDE
     Dosage: 200 MG, WHEN PAIN OCCURRED
     Route: 048
     Dates: start: 20210810, end: 20210811
  75. REBAMIPIDE [Concomitant]
     Active Substance: REBAMIPIDE
     Dosage: 100 MG, WHEN PAIN OCCURRED
     Route: 048
     Dates: start: 20210812, end: 20210816
  76. REBAMIPIDE [Concomitant]
     Active Substance: REBAMIPIDE
     Dosage: 300 MG, WHEN PAIN OCCURRED
     Route: 048
     Dates: start: 20210817, end: 20210817
  77. BILASTINE [Concomitant]
     Active Substance: BILASTINE
     Indication: Product used for unknown indication
     Dosage: 20 MG, QD (BEFORE BEDTIME)
     Route: 048
     Dates: start: 20210702, end: 20210708
  78. DIPHENHYDRAMINE [Concomitant]
     Active Substance: DIPHENHYDRAMINE
     Indication: Pruritus
     Dosage: 50 GRAM
     Route: 061
     Dates: start: 20210702, end: 20210702
  79. CEFCAPENE PIVOXIL HYDROCHLORIDE HYDRATE [Concomitant]
     Active Substance: CEFCAPENE PIVOXIL HYDROCHLORIDE HYDRATE
     Indication: Product used for unknown indication
     Dosage: 100 MILLIGRAM, TID
     Route: 048
     Dates: start: 20210702, end: 20210706
  80. URSODIOL [Concomitant]
     Active Substance: URSODIOL
     Indication: Product used for unknown indication
     Dosage: 100 MILLIGRAM, TID
     Route: 048
     Dates: start: 20210709, end: 20210715
  81. AMMONIUM GLYCYRRHIZATE\GLYCINE\RACEMETHIONINE [Concomitant]
     Active Substance: AMMONIUM GLYCYRRHIZATE\GLYCINE\RACEMETHIONINE
     Indication: Product used for unknown indication
     Dosage: 1 DOSAGE FORM, TID
     Route: 048
     Dates: start: 20210709, end: 20210715
  82. CALONAL [Concomitant]
     Active Substance: ACETAMINOPHEN
     Indication: Pyrexia
     Dosage: 400 MG WHEN PYREXIA OCCURRED
     Route: 048
     Dates: start: 20210727, end: 20210728
  83. CALONAL [Concomitant]
     Active Substance: ACETAMINOPHEN
     Indication: Pain
     Dosage: 400 MG WHEN PYREXIA OCCURRED
     Route: 048
     Dates: start: 20210712, end: 20210720
  84. CALONAL [Concomitant]
     Active Substance: ACETAMINOPHEN
     Dosage: 800 MG, WHEN PYREXIA OCCURRED
     Route: 048
     Dates: start: 20210721, end: 20210726
  85. CALONAL [Concomitant]
     Active Substance: ACETAMINOPHEN
     Dosage: 400 MG WHEN PYREXIA OCCURRED
     Route: 048
     Dates: start: 20210729, end: 20210729
  86. CALONAL [Concomitant]
     Active Substance: ACETAMINOPHEN
     Dosage: 800 MG WHEN PAIN/PYREXIA OCCURRED
     Route: 048
     Dates: start: 20210730, end: 20210804
  87. CALONAL [Concomitant]
     Active Substance: ACETAMINOPHEN
     Dosage: 400 MG WHEN PAIN OCCURRED
     Route: 048
     Dates: start: 20210805, end: 20210807
  88. CALONAL [Concomitant]
     Active Substance: ACETAMINOPHEN
     Dosage: 800 MG WHEN PAIN OCCURRED
     Route: 048
     Dates: start: 20210808, end: 20210813
  89. CALONAL [Concomitant]
     Active Substance: ACETAMINOPHEN
     Dosage: 1200 MG WHEN PAIN OCCURRED
     Route: 048
     Dates: start: 20210814, end: 20210816
  90. CALONAL [Concomitant]
     Active Substance: ACETAMINOPHEN
     Dosage: 2000 MG WHEN PAIN OCCURRED
     Route: 048
     Dates: start: 20210817, end: 20210817
  91. WHITE PETROLATUM [Concomitant]
     Active Substance: PETROLATUM
     Indication: Product used for unknown indication
     Dosage: 10 G SEVERAL TIMES A DAY
     Route: 061
     Dates: start: 20210712, end: 20210712
  92. GLYCOSAMINOGLYCANS [Concomitant]
     Active Substance: GLYCOSAMINOGLYCANS
     Indication: Product used for unknown indication
     Dosage: 25 G SEVERAL TIMES A DAY
     Route: 061
     Dates: start: 20210712, end: 20210712
  93. LANSOPRAZOLE [Concomitant]
     Active Substance: LANSOPRAZOLE
     Indication: Product used for unknown indication
     Dosage: 30 MILLIGRAM, QD
     Route: 048
     Dates: start: 20210714, end: 20210719
  94. NEXIUM [Concomitant]
     Active Substance: ESOMEPRAZOLE MAGNESIUM
     Indication: Product used for unknown indication
     Dosage: 20 MG, QD (AFTER BREAKFAST)
     Route: 048
     Dates: start: 20210715, end: 20210728
  95. NEXIUM [Concomitant]
     Active Substance: ESOMEPRAZOLE MAGNESIUM
     Dosage: 40 MG, QD (AFTER BREAKFAST)
     Route: 048
     Dates: start: 20210729, end: 20210802
  96. NEXIUM [Concomitant]
     Active Substance: ESOMEPRAZOLE MAGNESIUM
     Dosage: 20 MG, QD (AFTER BREAKFAST)
     Route: 048
     Dates: start: 20210803, end: 20210816
  97. NEXIUM [Concomitant]
     Active Substance: ESOMEPRAZOLE MAGNESIUM
     Dosage: 60 MG, QD (AFTER BREAKFAST)
     Route: 048
     Dates: start: 20210817, end: 20210817
  98. BISOPROLOL [Concomitant]
     Active Substance: BISOPROLOL
     Indication: Product used for unknown indication
     Dosage: 4 MG, QD
     Dates: start: 20210725, end: 20210727
  99. BISOPROLOL [Concomitant]
     Active Substance: BISOPROLOL
     Dosage: 4 MG, QD (EVENING)
     Dates: start: 20210802, end: 20210816
  100. BISOPROLOL [Concomitant]
     Active Substance: BISOPROLOL
     Dosage: 16 MG, QD (EVENING)
     Dates: start: 20210817, end: 20210817
  101. CALCIUM CHLORIDE ANHYDROUS\POTASSIUM CHLORIDE\SODIUM CHLORIDE\SODIUM L [Concomitant]
     Active Substance: CALCIUM CHLORIDE ANHYDROUS\POTASSIUM CHLORIDE\SODIUM CHLORIDE\SODIUM LACTATE
     Indication: Product used for unknown indication
     Dosage: 500 ML
     Route: 041
     Dates: start: 20210705, end: 20210705
  102. CALCIUM CHLORIDE ANHYDROUS\POTASSIUM CHLORIDE\SODIUM CHLORIDE\SODIUM L [Concomitant]
     Active Substance: CALCIUM CHLORIDE ANHYDROUS\POTASSIUM CHLORIDE\SODIUM CHLORIDE\SODIUM LACTATE
     Dosage: 500 ML
     Route: 041
     Dates: start: 20210702, end: 20210702
  103. CALCIUM CHLORIDE ANHYDROUS\POTASSIUM CHLORIDE\SODIUM CHLORIDE\SODIUM L [Concomitant]
     Active Substance: CALCIUM CHLORIDE ANHYDROUS\POTASSIUM CHLORIDE\SODIUM CHLORIDE\SODIUM LACTATE
     Dosage: 1000 ML
     Route: 041
     Dates: start: 20210730, end: 20210730
  104. CALCIUM CHLORIDE ANHYDROUS\POTASSIUM CHLORIDE\SODIUM CHLORIDE\SODIUM L [Concomitant]
     Active Substance: CALCIUM CHLORIDE ANHYDROUS\POTASSIUM CHLORIDE\SODIUM CHLORIDE\SODIUM LACTATE
     Dosage: 500 MILLILITER
     Route: 041
     Dates: start: 20210706, end: 20210706
  105. CALCIUM CHLORIDE ANHYDROUS\POTASSIUM CHLORIDE\SODIUM CHLORIDE\SODIUM L [Concomitant]
     Active Substance: CALCIUM CHLORIDE ANHYDROUS\POTASSIUM CHLORIDE\SODIUM CHLORIDE\SODIUM LACTATE
     Dosage: 1000 UNK
     Route: 041
     Dates: start: 20210804, end: 20210804
  106. CALCIUM CHLORIDE ANHYDROUS\POTASSIUM CHLORIDE\SODIUM CHLORIDE\SODIUM L [Concomitant]
     Active Substance: CALCIUM CHLORIDE ANHYDROUS\POTASSIUM CHLORIDE\SODIUM CHLORIDE\SODIUM LACTATE
     Dosage: 1500 UNK
     Route: 041
     Dates: start: 20210805, end: 20210811
  107. CALCIUM CHLORIDE ANHYDROUS\POTASSIUM CHLORIDE\SODIUM CHLORIDE\SODIUM L [Concomitant]
     Active Substance: CALCIUM CHLORIDE ANHYDROUS\POTASSIUM CHLORIDE\SODIUM CHLORIDE\SODIUM LACTATE
     Dosage: 1000 UNK
     Route: 041
     Dates: start: 20210812, end: 20210812
  108. CALCIUM CHLORIDE ANHYDROUS\POTASSIUM CHLORIDE\SODIUM CHLORIDE\SODIUM L [Concomitant]
     Active Substance: CALCIUM CHLORIDE ANHYDROUS\POTASSIUM CHLORIDE\SODIUM CHLORIDE\SODIUM LACTATE
     Dosage: 500 UNK  *SINGLE *SINGLE *SINGLE *SINGLE *SINGLE
     Route: 041
     Dates: start: 20210813, end: 20210813
  109. SOLDEM 3A [Concomitant]
     Active Substance: CARBOHYDRATES\POTASSIUM CHLORIDE\SODIUM CHLORIDE\SODIUM LACTATE
     Indication: Product used for unknown indication
     Dosage: 500 ML
     Route: 041
     Dates: start: 20210708, end: 20210713
  110. SOLDEM 3A [Concomitant]
     Active Substance: CARBOHYDRATES\POTASSIUM CHLORIDE\SODIUM CHLORIDE\SODIUM LACTATE
     Dosage: 1000 ML
     Route: 041
     Dates: start: 20210706, end: 20210706
  111. SOLDEM 3A [Concomitant]
     Active Substance: CARBOHYDRATES\POTASSIUM CHLORIDE\SODIUM CHLORIDE\SODIUM LACTATE
     Dosage: 1500 ML
     Route: 041
     Dates: start: 20210707, end: 20210707
  112. METOCLOPRAMIDE HYDROCHLORIDE [Concomitant]
     Active Substance: METOCLOPRAMIDE HYDROCHLORIDE
     Indication: Product used for unknown indication
     Dosage: 10 MILLIGRAM
     Route: 041
     Dates: start: 20210712, end: 20210712
  113. METOCLOPRAMIDE HYDROCHLORIDE [Concomitant]
     Active Substance: METOCLOPRAMIDE HYDROCHLORIDE
     Dosage: 10 MILLIGRAM
     Route: 041
     Dates: start: 20210707, end: 20210707
  114. METOCLOPRAMIDE HYDROCHLORIDE [Concomitant]
     Active Substance: METOCLOPRAMIDE HYDROCHLORIDE
     Dosage: 10 MILLIGRAM
     Route: 041
     Dates: start: 20210811, end: 20210811
  115. HEPARIN SODIUM [Concomitant]
     Active Substance: HEPARIN SODIUM
     Indication: Product used for unknown indication
     Dosage: 500 U 5 ML/1 V
     Route: 041
     Dates: start: 20210714, end: 20210714
  116. HEPARIN SODIUM [Concomitant]
     Active Substance: HEPARIN SODIUM
     Dosage: 500 U 5 ML/1 V
     Route: 041
     Dates: start: 20210707, end: 20210712
  117. HEPARIN SODIUM [Concomitant]
     Active Substance: HEPARIN SODIUM
     Dosage: 500 U 5 ML/2 V
     Route: 041
     Dates: start: 20210713, end: 20210713
  118. HEPARIN SODIUM [Concomitant]
     Active Substance: HEPARIN SODIUM
     Dosage: 500 U 5 ML/1 V
     Route: 041
     Dates: start: 20210804, end: 20210808
  119. HEPARIN SODIUM [Concomitant]
     Active Substance: HEPARIN SODIUM
     Dosage: 500 U 5 ML/1 V
     Route: 041
     Dates: start: 20210810, end: 20210811
  120. HEPARIN SODIUM [Concomitant]
     Active Substance: HEPARIN SODIUM
     Dosage: 500 U 5 ML/1 V
     Route: 041
     Dates: start: 20210813, end: 20210813
  121. GASTER [Concomitant]
     Active Substance: FAMOTIDINE
     Indication: Product used for unknown indication
     Dosage: 20 MILLIGRAM
     Route: 041
     Dates: start: 20210712, end: 20210713
  122. PREDNISOLONE SODIUM SUCCINATE [Concomitant]
     Active Substance: PREDNISOLONE SODIUM SUCCINATE
     Indication: Product used for unknown indication
     Dosage: 40 MILLIGRAM
     Route: 041
     Dates: start: 20210712, end: 20210714
  123. PREDNISOLONE SODIUM SUCCINATE [Concomitant]
     Active Substance: PREDNISOLONE SODIUM SUCCINATE
     Dosage: 45 MILLIGRAM
     Route: 048
     Dates: start: 20210727, end: 20210728
  124. PREDNISOLONE SODIUM SUCCINATE [Concomitant]
     Active Substance: PREDNISOLONE SODIUM SUCCINATE
     Dosage: 40 MILLIGRAM
     Route: 041
     Dates: start: 20210712, end: 20210714
  125. PREDNISOLONE SODIUM SUCCINATE [Concomitant]
     Active Substance: PREDNISOLONE SODIUM SUCCINATE
     Dosage: 45 MILLIGRAM, QD
     Route: 048
     Dates: start: 20210727, end: 20210728
  126. PREDNISOLONE SODIUM SUCCINATE [Concomitant]
     Active Substance: PREDNISOLONE SODIUM SUCCINATE
     Dosage: 40 MILLIGRAM, QD
     Route: 048
     Dates: start: 20210712, end: 20210714
  127. PREDNISOLONE SODIUM SUCCINATE [Concomitant]
     Active Substance: PREDNISOLONE SODIUM SUCCINATE
     Dosage: 80 MILLIGRAM
     Route: 048
     Dates: start: 20210715, end: 20210718
  128. PREDNISOLONE SODIUM SUCCINATE [Concomitant]
     Active Substance: PREDNISOLONE SODIUM SUCCINATE
     Dosage: 30 MILLIGRAM, QD
     Route: 048
     Dates: start: 20210719, end: 20210725
  129. PREDNISOLONE SODIUM SUCCINATE [Concomitant]
     Active Substance: PREDNISOLONE SODIUM SUCCINATE
     Dosage: 55 MILLIGRAM, QD
     Route: 048
     Dates: start: 20210726, end: 20210726
  130. PREDNISOLONE SODIUM SUCCINATE [Concomitant]
     Active Substance: PREDNISOLONE SODIUM SUCCINATE
     Dosage: 65 MILLIGRAM, QD
     Route: 048
     Dates: start: 20210729, end: 20210801
  131. PREDNISOLONE SODIUM SUCCINATE [Concomitant]
     Active Substance: PREDNISOLONE SODIUM SUCCINATE
     Dosage: 40 MILLIGRAM, QD
     Route: 048
     Dates: start: 20210802, end: 20210802
  132. PREDNISOLONE SODIUM SUCCINATE [Concomitant]
     Active Substance: PREDNISOLONE SODIUM SUCCINATE
     Dosage: 20 MILLIGRAM, QD
     Route: 048
     Dates: start: 20210803, end: 20210809
  133. PREDNISOLONE SODIUM SUCCINATE [Concomitant]
     Active Substance: PREDNISOLONE SODIUM SUCCINATE
     Dosage: 15 MILLIGRAM, QD
     Route: 048
     Dates: start: 20210810, end: 20210816
  134. PREDNISOLONE SODIUM SUCCINATE [Concomitant]
     Active Substance: PREDNISOLONE SODIUM SUCCINATE
     Dosage: 45 MILLIGRAM, QD
     Route: 048
     Dates: start: 20210817, end: 20210817
  135. METOPROLOL TARTRATE [Concomitant]
     Active Substance: METOPROLOL TARTRATE
     Indication: Product used for unknown indication
     Dosage: 40 MG, QD (NOON)
     Route: 048
     Dates: start: 20210729, end: 20210729
  136. NITROGLYCERIN [Concomitant]
     Active Substance: NITROGLYCERIN
     Indication: Product used for unknown indication
     Dosage: 0.3 MILLIGRAM
     Route: 060
     Dates: start: 20210729, end: 20210729
  137. ZOLPIDEM TARTRATE [Concomitant]
     Active Substance: ZOLPIDEM TARTRATE
     Indication: Product used for unknown indication
     Dosage: 5 MG, QD(BEFORE BEDTIME)
     Route: 048
     Dates: start: 20210808, end: 20210808
  138. ZOLPIDEM TARTRATE [Concomitant]
     Active Substance: ZOLPIDEM TARTRATE
     Dosage: 10 MG, QD (BEFORE BEDTIME)
     Route: 048
     Dates: start: 20210810, end: 20210810
  139. ZOLPIDEM TARTRATE [Concomitant]
     Active Substance: ZOLPIDEM TARTRATE
     Dosage: 5 MG, QD (BEFORE BEDTIME)
     Route: 048
     Dates: start: 20210811, end: 20210816
  140. ZOLPIDEM TARTRATE [Concomitant]
     Active Substance: ZOLPIDEM TARTRATE
     Dosage: 15 MG, QD (BEFORE BEDTIME)
     Route: 048
     Dates: start: 20210817, end: 20210817
  141. PIPERACILLIN SODIUM\TAZOBACTAM SODIUM [Concomitant]
     Active Substance: PIPERACILLIN SODIUM\TAZOBACTAM SODIUM
     Indication: C-reactive protein increased
     Dosage: 4.5 G, TID
     Route: 041
     Dates: start: 20210706, end: 20210712
  142. PIPERACILLIN SODIUM\TAZOBACTAM SODIUM [Concomitant]
     Active Substance: PIPERACILLIN SODIUM\TAZOBACTAM SODIUM
     Dosage: 4.5 G
     Route: 041
     Dates: start: 20210705, end: 20210705
  143. HERBALS [Concomitant]
     Active Substance: HERBALS
     Indication: Product used for unknown indication
     Dosage: 2.5 GRAM, TID
     Route: 048
     Dates: start: 20210706, end: 20210728
  144. HERBALS [Concomitant]
     Active Substance: HERBALS
     Dosage: 2.5 G, TID(IMMEDIATELY BEFORE MEAL)
     Route: 048
     Dates: start: 20210628, end: 20210704
  145. HERBALS [Concomitant]
     Active Substance: HERBALS
     Dosage: 5 G, TID (IMMEDIATELY BEFORE MEAL)
     Route: 048
     Dates: start: 20210705, end: 20210705
  146. HERBALS [Concomitant]
     Active Substance: HERBALS
     Dosage: 5 G, TID (IMMEDIATELY BEFORE MEAL)
     Route: 048
     Dates: start: 20210729, end: 20210802
  147. HERBALS [Concomitant]
     Active Substance: HERBALS
     Dosage: 2.5 G, TID(IMMEDIATELY BEFORE MEAL)
     Route: 048
     Dates: start: 20210803, end: 20210816
  148. HERBALS [Concomitant]
     Active Substance: HERBALS
     Dosage: 7.5 G, TID (IMMEDIATELY BEFORE MEAL)
     Route: 048
     Dates: start: 20210817, end: 20210817
  149. Sokeikakketsuto [Concomitant]
     Indication: Product used for unknown indication
     Dosage: 1 DOSAGE FORM, TID
     Route: 048
     Dates: start: 20210628, end: 20210705
  150. Yokuininto [Concomitant]
     Indication: Product used for unknown indication
     Dosage: 1 DF, TID(IMMEDIATELY BEFORE MEAL)
     Route: 048
     Dates: start: 20210721, end: 20210728
  151. Yokuininto [Concomitant]
     Dosage: 2 DF, TID(IMMEDIATELY BEFORE MEAL)
     Route: 048
     Dates: start: 20210729, end: 20210802
  152. Yokuininto [Concomitant]
     Dosage: 1 DF, TID(IMMEDIATELY BEFORE MEAL)
     Route: 048
     Dates: start: 20210803, end: 20210816
  153. Yokuininto [Concomitant]
     Dosage: 3 DF, TID(IMMEDIATELY BEFORE MEAL)
     Route: 048
     Dates: start: 20210817, end: 20210817
  154. SODIUM CHLORIDE [Concomitant]
     Active Substance: SODIUM CHLORIDE
     Indication: Product used for unknown indication
     Dosage: 100 ML
     Route: 041
     Dates: start: 20210713, end: 20210714
  155. SODIUM CHLORIDE [Concomitant]
     Active Substance: SODIUM CHLORIDE
     Dosage: 100 MILLILITER
     Route: 041
     Dates: start: 20210705, end: 20210705
  156. SODIUM CHLORIDE [Concomitant]
     Active Substance: SODIUM CHLORIDE
     Dosage: 300 MILLILITER
     Route: 041
     Dates: start: 20210706, end: 20210711
  157. SODIUM CHLORIDE [Concomitant]
     Active Substance: SODIUM CHLORIDE
     Dosage: 400 MILLILITER
     Route: 041
     Dates: start: 20210712, end: 20210712
  158. CALCIUM CHLORIDE\POTASSIUM CHLORIDE\SODIUM ACETATE\SODIUM CHLORIDE [Concomitant]
     Active Substance: CALCIUM CHLORIDE\POTASSIUM CHLORIDE\SODIUM ACETATE\SODIUM CHLORIDE
     Indication: Product used for unknown indication
     Dosage: 500 ML
     Route: 041
     Dates: start: 20210706, end: 20210706
  159. CALCIUM CHLORIDE\POTASSIUM CHLORIDE\SODIUM ACETATE\SODIUM CHLORIDE [Concomitant]
     Active Substance: CALCIUM CHLORIDE\POTASSIUM CHLORIDE\SODIUM ACETATE\SODIUM CHLORIDE
     Dosage: 1000 ML
     Route: 041
     Dates: start: 20210804, end: 20210804
  160. CALCIUM CHLORIDE\POTASSIUM CHLORIDE\SODIUM ACETATE\SODIUM CHLORIDE [Concomitant]
     Active Substance: CALCIUM CHLORIDE\POTASSIUM CHLORIDE\SODIUM ACETATE\SODIUM CHLORIDE
     Dosage: 1500 MILLILITER
     Route: 041
     Dates: start: 20210805, end: 20210811
  161. CALCIUM CHLORIDE\POTASSIUM CHLORIDE\SODIUM ACETATE\SODIUM CHLORIDE [Concomitant]
     Active Substance: CALCIUM CHLORIDE\POTASSIUM CHLORIDE\SODIUM ACETATE\SODIUM CHLORIDE
     Dosage: 1000 ML
     Route: 041
     Dates: start: 20210812, end: 20210812
  162. CALCIUM CHLORIDE\POTASSIUM CHLORIDE\SODIUM ACETATE\SODIUM CHLORIDE [Concomitant]
     Active Substance: CALCIUM CHLORIDE\POTASSIUM CHLORIDE\SODIUM ACETATE\SODIUM CHLORIDE
     Dosage: 500 ML
     Route: 041
     Dates: start: 20210813, end: 20210813
  163. ISOTONIC SODIUM CHLORIDE SOLUTION [Concomitant]
     Active Substance: SODIUM CHLORIDE
     Indication: Product used for unknown indication
     Dosage: 100 MILLILITER
     Route: 041
     Dates: start: 20210712, end: 20210712
  164. ISOTONIC SODIUM CHLORIDE SOLUTION [Concomitant]
     Active Substance: SODIUM CHLORIDE
     Dosage: 50 MILLILITER
     Route: 041
     Dates: start: 20210707, end: 20210707
  165. ISOTONIC SODIUM CHLORIDE SOLUTION [Concomitant]
     Active Substance: SODIUM CHLORIDE
     Dosage: 50 MILLILITER
     Route: 041
     Dates: start: 20210811, end: 20210811

REACTIONS (4)
  - Subarachnoid haemorrhage [Recovered/Resolved]
  - Arteritis [Recovered/Resolved]
  - Arteritis [Recovered/Resolved]
  - Aortitis [Recovered/Resolved]

NARRATIVE: CASE EVENT DATE: 20210712
